FAERS Safety Report 11199234 (Version 3)
Quarter: 2015Q3

REPORT INFORMATION
  Report Type: Spontaneous
  Country: US (occurrence: US)
  Receive Date: 20150618
  Receipt Date: 20150715
  Transmission Date: 20151125
  Serious: Yes (Other)
  Sender: FDA-Public Use
  Company Number: US-PFIZER INC-2015196998

PATIENT
  Age: 81 Year
  Sex: Male
  Weight: 76.19 kg

DRUGS (5)
  1. XALATAN [Suspect]
     Active Substance: LATANOPROST
     Dosage: UNK (1 GTT OU ONCE DAILY AT NIGHT)
     Dates: start: 1992
  2. XALATAN [Suspect]
     Active Substance: LATANOPROST
     Dosage: UNK
  3. XALATAN [Suspect]
     Active Substance: LATANOPROST
     Dosage: ONCE BOTH EYES AT BED TIME
     Route: 061
     Dates: start: 1992
  4. XALATAN [Suspect]
     Active Substance: LATANOPROST
     Indication: GLAUCOMA
     Dosage: 1 DROP IN BOTH EYES AT BEDTIME
     Route: 047
     Dates: start: 1992
  5. XALATAN [Suspect]
     Active Substance: LATANOPROST
     Dosage: UNK

REACTIONS (6)
  - Product quality issue [Recovered/Resolved]
  - Intraocular pressure increased [Unknown]
  - Eye swelling [Unknown]
  - Eyelid oedema [Recovered/Resolved]
  - Drug hypersensitivity [Not Recovered/Not Resolved]
  - Ocular hyperaemia [Not Recovered/Not Resolved]

NARRATIVE: CASE EVENT DATE: 201502
